FAERS Safety Report 10671148 (Version 1)
Quarter: 2014Q4

REPORT INFORMATION
  Report Type: Spontaneous
  Country: TW (occurrence: TW)
  Receive Date: 20141223
  Receipt Date: 20141223
  Transmission Date: 20150529
  Serious: Yes (Other)
  Sender: FDA-Public Use
  Company Number: TW-009507513-1412TWN010342

PATIENT
  Age: 79 Year
  Sex: Female
  Weight: 48.5 kg

DRUGS (2)
  1. ERTAPENEM SODIUM [Suspect]
     Active Substance: ERTAPENEM SODIUM
     Indication: SMALL INTESTINAL OBSTRUCTION
  2. ERTAPENEM SODIUM [Suspect]
     Active Substance: ERTAPENEM SODIUM
     Indication: INFECTION PROPHYLAXIS
     Dosage: 500 MG, QD, ACCUMULATIVE DOSES: 1500
     Route: 042

REACTIONS (2)
  - Agitation [Recovered/Resolved]
  - Neurotoxicity [Recovered/Resolved]
